FAERS Safety Report 20979197 (Version 1)
Quarter: 2022Q2

REPORT INFORMATION
  Report Type: Spontaneous
  Country: AR (occurrence: AR)
  Receive Date: 20220620
  Receipt Date: 20220620
  Transmission Date: 20220721
  Serious: Yes (Other)
  Sender: FDA-Public Use
  Company Number: AR-PFIZER INC-PV202200001987

PATIENT
  Age: 68 Year
  Sex: Female

DRUGS (1)
  1. ENBREL [Suspect]
     Active Substance: ETANERCEPT
     Indication: Rheumatoid arthritis
     Dosage: 50 MG (1 DOSE EVERY 10 DAYS)
     Route: 065
     Dates: start: 20190821

REACTIONS (6)
  - Urticaria [Recovered/Resolved]
  - Off label use [Unknown]
  - Product dose omission issue [Unknown]
  - Product lot number issue [Unknown]
  - Illness [Recovered/Resolved]
  - Memory impairment [Unknown]

NARRATIVE: CASE EVENT DATE: 20190821
